FAERS Safety Report 6098720-9 (Version None)
Quarter: 2009Q1

REPORT INFORMATION
  Report Type: 
  Country: None (occurrence: None)
  Receive Date: 20090302
  Receipt Date: 20090224
  Transmission Date: 20090719
  Serious: Yes (Hospitalization)
  Sender: FDA-Public Use
  Company Number: FR-ASTRAZENECA-2009CG00439

PATIENT
  Age: 30128 Day
  Sex: Female

DRUGS (4)
  1. MOPRAL [Suspect]
     Route: 048
     Dates: start: 20081110, end: 20081226
  2. PROFENID [Suspect]
     Indication: OSTEOARTHRITIS
     Route: 048
     Dates: start: 20081210, end: 20081226
  3. DAFALGAN [Suspect]
     Route: 048
     Dates: start: 20081110
  4. DECONTRACTYL [Concomitant]

REACTIONS (1)
  - RENAL FAILURE ACUTE [None]
